FAERS Safety Report 20511528 (Version 5)
Quarter: 2022Q2

REPORT INFORMATION
  Report Type: Spontaneous
  Country: CZ (occurrence: CZ)
  Receive Date: 20220224
  Receipt Date: 20220409
  Transmission Date: 20220721
  Serious: Yes (Life-Threatening, Hospitalization, Other)
  Sender: FDA-Public Use
  Company Number: CZ-NOVARTISPH-NVSC2022CZ039882

PATIENT
  Sex: Male

DRUGS (3)
  1. MAYZENT [Interacting]
     Active Substance: SIPONIMOD
     Indication: Secondary progressive multiple sclerosis
     Dosage: 2 MG, UNKNOWN
     Route: 065
     Dates: start: 20220211
  2. WARFARIN [Interacting]
     Active Substance: WARFARIN
     Indication: Arrhythmia
     Dosage: UNK
     Route: 065
  3. EDOXABAN TOSYLATE [Concomitant]
     Active Substance: EDOXABAN TOSYLATE
     Indication: Product used for unknown indication
     Dosage: UNK
     Route: 065

REACTIONS (8)
  - Gastric haemorrhage [Recovered/Resolved with Sequelae]
  - Melaena [Recovered/Resolved with Sequelae]
  - Fatigue [Unknown]
  - Anaemia [Recovered/Resolved with Sequelae]
  - Condition aggravated [Unknown]
  - Oesophageal ulcer haemorrhage [Recovered/Resolved]
  - Drug interaction [Unknown]
  - Overdose [Unknown]

NARRATIVE: CASE EVENT DATE: 20220217
